FAERS Safety Report 22081687 (Version 1)
Quarter: 2023Q1

REPORT INFORMATION
  Report Type: Other
  Country: None (occurrence: TR)
  Receive Date: 20230310
  Receipt Date: 20230310
  Transmission Date: 20230418
  Serious: Yes (Other)
  Sender: FDA-Public Use
  Company Number: TR-ACI HealthCare Limited-2138903

PATIENT
  Age: 57 Year
  Sex: Male

DRUGS (1)
  1. DONEPEZIL HYDROCHLORIDE [Suspect]
     Active Substance: DONEPEZIL HYDROCHLORIDE
     Indication: Dementia
     Route: 065

REACTIONS (3)
  - Persecutory delusion [Recovered/Resolved]
  - Disorganised speech [Recovering/Resolving]
  - Neurodegenerative disorder [Recovering/Resolving]
